FAERS Safety Report 4626983-2 (Version None)
Quarter: 2005Q1

REPORT INFORMATION
  Report Type: 
  Country: None (occurrence: None)
  Receive Date: 20050331
  Receipt Date: 20050324
  Transmission Date: 20050727
  Serious: Yes (Death)
  Sender: FDA-Public Use
  Company Number: US-2005-004366

PATIENT
  Age: 51 Year
  Sex: Female

DRUGS (1)
  1. BETASERON [Suspect]
     Indication: MULTIPLE SCLEROSIS
     Dates: start: 19970508, end: 20050110

REACTIONS (2)
  - CONDITION AGGRAVATED [None]
  - MULTIPLE SCLEROSIS [None]
